FAERS Safety Report 18782086 (Version 1)
Quarter: 2021Q1

REPORT INFORMATION
  Report Type: Spontaneous
  Country: US (occurrence: US)
  Receive Date: 20210125
  Receipt Date: 20210125
  Transmission Date: 20210419
  Serious: No
  Sender: FDA-Public Use
  Company Number: US-ALLERGAN-2021722US

PATIENT
  Age: 68 Year
  Sex: Female

DRUGS (2)
  1. RESTASIS [Suspect]
     Active Substance: CYCLOSPORINE
     Indication: DRY EYE
     Dosage: UNK, QD
     Route: 047
     Dates: end: 202005
  2. ATENOLOL. [Concomitant]
     Active Substance: ATENOLOL
     Indication: TREMOR
     Dosage: 50 MG, QD
     Route: 048

REACTIONS (4)
  - Ocular hyperaemia [Recovering/Resolving]
  - Off label use [Unknown]
  - Eye irritation [Recovered/Resolved]
  - Drug hypersensitivity [Unknown]
